FAERS Safety Report 8969414 (Version 1)
Quarter: 2012Q4

REPORT INFORMATION
  Report Type: 
  Country: US (occurrence: US)
  Receive Date: 20121218
  Receipt Date: 20121218
  Transmission Date: 20130627
  Serious: Yes (Other)
  Sender: FDA-Public Use
  Company Number: US-AMGEN-USASP2012078343

PATIENT
  Age: 44 Year
  Sex: Male

DRUGS (1)
  1. PROCRIT [Suspect]
     Indication: PRODUCT USED FOR UNKNOWN INDICATION
     Dosage: UNK

REACTIONS (8)
  - Palpitations [Unknown]
  - Tremor [Unknown]
  - Restlessness [Unknown]
  - Hypersensitivity [Unknown]
  - Rash [Unknown]
  - Urticaria [Unknown]
  - Pruritus [Unknown]
  - Insomnia [Unknown]
